FAERS Safety Report 10543979 (Version 1)
Quarter: 2014Q4

REPORT INFORMATION
  Report Type: Spontaneous
  Country: US (occurrence: US)
  Receive Date: 20141027
  Receipt Date: 20141027
  Transmission Date: 20150529
  Serious: No
  Sender: FDA-Public Use
  Company Number: US-BAYER-2014-156424

PATIENT
  Age: 42 Year
  Sex: Female

DRUGS (1)
  1. MIRENA [Suspect]
     Active Substance: LEVONORGESTREL
     Indication: MENORRHAGIA
     Dosage: 20 MCG/24HR, CONT
     Route: 015
     Dates: start: 20141013, end: 20141020

REACTIONS (6)
  - Abdominal pain lower [None]
  - Menorrhagia [Not Recovered/Not Resolved]
  - Dizziness [None]
  - Post procedural discharge [None]
  - Headache [None]
  - Device expulsion [None]

NARRATIVE: CASE EVENT DATE: 201410
